FAERS Safety Report 22518948 (Version 2)
Quarter: 2023Q2

REPORT INFORMATION
  Report Type: Spontaneous
  Country: DE (occurrence: DE)
  Receive Date: 20230605
  Receipt Date: 20230615
  Transmission Date: 20230722
  Serious: Yes (Hospitalization)
  Sender: FDA-Public Use
  Company Number: DE-BAXTER-2023BAX022673

PATIENT
  Sex: Male
  Weight: 58.6 kg

DRUGS (19)
  1. CYCLOPHOSPHAMIDE [Suspect]
     Active Substance: CYCLOPHOSPHAMIDE
     Indication: Rheumatoid arthritis
     Dosage: 970 MG IN 500 ML NAC, INFUSION
     Route: 042
     Dates: start: 20230519
  2. HYGROTON [Concomitant]
     Active Substance: CHLORTHALIDONE
     Dosage: 12.5 MG, QD, 1-0-0
     Route: 065
  3. CANDESARTAN [Concomitant]
     Active Substance: CANDESARTAN
     Dosage: 16 MG, 0.5 D, 0-1-0-1
     Route: 065
  4. Calcium + iron [Concomitant]
     Dosage: 500 MG, 8 H, 1-1-1
     Route: 065
  5. LEVOTHYROXINE SODIUM [Concomitant]
     Active Substance: LEVOTHYROXINE SODIUM
     Dosage: 25 UG, QD, 1-0-0 (INTAKE ON EMPTY STOMACH)
     Route: 065
  6. SODIUM BICARBONATE [Concomitant]
     Active Substance: SODIUM BICARBONATE
     Dosage: 1 G, 1-0-1, 0.5 D, (SODIUM HYDROGEN CARBONATE)
     Route: 065
  7. PREDNISOLONE [Concomitant]
     Active Substance: PREDNISOLONE
     Dosage: 7.5 MG, QD, 7,5MG-0-0
     Route: 065
  8. CHOLECALCIFEROL [Concomitant]
     Active Substance: CHOLECALCIFEROL
     Dosage: 1000 IU, QD, 0-0-0-1
     Route: 065
  9. ESCITALOPRAM [Concomitant]
     Active Substance: ESCITALOPRAM OXALATE
     Dosage: 5 MG, QD, 1-0-0
     Route: 065
  10. MESNA [Concomitant]
     Active Substance: MESNA
     Indication: Chemotherapy side effect prophylaxis
     Dosage: UNK
     Route: 065
  11. FOLIC ACID [Concomitant]
     Active Substance: FOLIC ACID
     Dosage: 5 MG, QD, 1-0-0
     Route: 065
  12. ATORVASTATIN [Concomitant]
     Active Substance: ATORVASTATIN
     Dosage: 40 MG, QD, 0-0-0-1
     Route: 065
  13. QUETIAPINE [Concomitant]
     Active Substance: QUETIAPINE
     Dosage: 25 MG, QD, 0-0-0-1
     Route: 065
  14. LERCANIDIPINE [Concomitant]
     Active Substance: LERCANIDIPINE
     Dosage: 10 MG, 0.5 D, 1-0-1
     Route: 065
  15. ONDANSETRON [Concomitant]
     Active Substance: ONDANSETRON
     Indication: Chemotherapy side effect prophylaxis
     Dosage: UNK
     Route: 065
     Dates: start: 20230519
  16. FALITHROM [Concomitant]
     Active Substance: PHENPROCOUMON
     Dosage: 1/2 -0-0 (ACCORDING TO INR-VALUE)
     Route: 065
  17. ZINC [Concomitant]
     Active Substance: ZINC
     Dosage: 15 MG, QD, 1-0-0
     Route: 065
  18. VITAMIN B1 [Concomitant]
     Active Substance: THIAMINE HYDROCHLORIDE
     Dosage: 200 UG, QD, 1-0-0
     Route: 065
  19. ACLASTA [Concomitant]
     Active Substance: ZOLEDRONIC ACID
     Dosage: 5 MG, 1 YEAR, 1X YEARLY
     Route: 042
     Dates: start: 20230420

REACTIONS (5)
  - Infusion related reaction [Unknown]
  - Rheumatoid arthritis [Unknown]
  - C-reactive protein increased [Unknown]
  - Pyrexia [Not Recovered/Not Resolved]
  - Chills [Not Recovered/Not Resolved]

NARRATIVE: CASE EVENT DATE: 20230520
